FAERS Safety Report 23873457 (Version 1)
Quarter: 2024Q2

REPORT INFORMATION
  Report Type: Spontaneous
  Country: CA (occurrence: CA)
  Receive Date: 20240520
  Receipt Date: 20240520
  Transmission Date: 20240716
  Serious: Yes (Other)
  Sender: FDA-Public Use
  Company Number: CA-MYLANLABS-2024M1043413

PATIENT
  Age: 41 Year
  Sex: Female

DRUGS (138)
  1. LANSOPRAZOLE [Suspect]
     Active Substance: LANSOPRAZOLE
     Indication: Migraine
     Dosage: UNK
     Route: 065
  2. CLARITHROMYCIN [Suspect]
     Active Substance: CLARITHROMYCIN
     Indication: Product used for unknown indication
     Dosage: UNK
     Route: 065
  3. SERTRALINE [Suspect]
     Active Substance: SERTRALINE HYDROCHLORIDE
     Indication: Migraine
     Dosage: UNK
     Route: 065
  4. SERTRALINE [Suspect]
     Active Substance: SERTRALINE HYDROCHLORIDE
     Indication: Migraine
     Dosage: UNK
     Route: 065
  5. VENLAFAXINE [Suspect]
     Active Substance: VENLAFAXINE HYDROCHLORIDE
     Indication: Product used for unknown indication
     Dosage: UNK
     Route: 065
  6. DEXAMETHASONE [Suspect]
     Active Substance: DEXAMETHASONE
     Indication: Migraine
     Dosage: UNK
     Route: 065
  7. DEXAMETHASONE [Suspect]
     Active Substance: DEXAMETHASONE
     Dosage: UNK
     Route: 065
  8. ACETAMINOPHEN [Suspect]
     Active Substance: ACETAMINOPHEN
     Indication: Product used for unknown indication
     Dosage: UNK
     Route: 065
  9. AMOXICILLIN [Suspect]
     Active Substance: AMOXICILLIN
     Indication: Product used for unknown indication
     Dosage: UNK
     Route: 065
  10. AMOXICILLIN [Suspect]
     Active Substance: AMOXICILLIN
     Dosage: UNK
     Route: 065
  11. HYDROMORPHONE [Suspect]
     Active Substance: HYDROMORPHONE
     Indication: Migraine
     Dosage: UNK
     Route: 065
  12. HYDROMORPHONE [Suspect]
     Active Substance: HYDROMORPHONE
     Dosage: UNK
     Route: 065
  13. HYDROMORPHONE [Suspect]
     Active Substance: HYDROMORPHONE
     Dosage: UNK
     Route: 065
  14. HYDROMORPHONE [Suspect]
     Active Substance: HYDROMORPHONE
     Dosage: UNK
     Route: 065
  15. HYDROMORPHONE [Suspect]
     Active Substance: HYDROMORPHONE
     Dosage: UNK
     Route: 065
  16. HYDROMORPHONE [Suspect]
     Active Substance: HYDROMORPHONE
     Dosage: UNK
     Route: 065
  17. HYDROMORPHONE [Suspect]
     Active Substance: HYDROMORPHONE
     Dosage: UNK
     Route: 065
  18. HYDROMORPHONE [Suspect]
     Active Substance: HYDROMORPHONE
     Dosage: UNK
     Route: 065
  19. HYDROMORPHONE [Suspect]
     Active Substance: HYDROMORPHONE
     Dosage: UNK
     Route: 065
  20. HYDROMORPHONE [Suspect]
     Active Substance: HYDROMORPHONE
     Dosage: UNK
     Route: 065
  21. HYDROMORPHONE [Suspect]
     Active Substance: HYDROMORPHONE
     Dosage: UNK
     Route: 065
  22. HYDROMORPHONE [Suspect]
     Active Substance: HYDROMORPHONE
     Dosage: UNK
     Route: 065
  23. HYDROMORPHONE [Suspect]
     Active Substance: HYDROMORPHONE
     Dosage: UNK
     Route: 065
  24. DULOXETINE HYDROCHLORIDE [Suspect]
     Active Substance: DULOXETINE HYDROCHLORIDE
     Indication: Migraine
     Dosage: UNK
     Route: 065
  25. CODEINE [Suspect]
     Active Substance: CODEINE
     Indication: Migraine
     Dosage: UNK
     Route: 065
  26. CODEINE [Suspect]
     Active Substance: CODEINE
     Dosage: UNK
     Route: 065
  27. BOTULINUM TOXIN TYPE A [Suspect]
     Active Substance: BOTULINUM TOXIN TYPE A
     Indication: Product used for unknown indication
     Dosage: UNK
     Route: 065
  28. BOTULINUM TOXIN TYPE A [Suspect]
     Active Substance: BOTULINUM TOXIN TYPE A
     Dosage: UNK
     Route: 065
  29. BOTULINUM TOXIN TYPE A [Suspect]
     Active Substance: BOTULINUM TOXIN TYPE A
     Dosage: UNK
     Route: 065
  30. BOTULINUM TOXIN TYPE A [Suspect]
     Active Substance: BOTULINUM TOXIN TYPE A
     Dosage: UNK
     Route: 065
  31. BOTULINUM TOXIN TYPE A [Suspect]
     Active Substance: BOTULINUM TOXIN TYPE A
     Dosage: UNK
     Route: 065
  32. BOTULINUM TOXIN TYPE A [Suspect]
     Active Substance: BOTULINUM TOXIN TYPE A
     Dosage: UNK
     Route: 065
  33. FLUCONAZOLE [Suspect]
     Active Substance: FLUCONAZOLE
     Indication: Migraine
     Dosage: UNK
     Route: 065
  34. ESCITALOPRAM [Suspect]
     Active Substance: ESCITALOPRAM OXALATE
     Indication: Migraine
     Dosage: UNK
     Route: 065
  35. ESOMEPRAZOLE [Suspect]
     Active Substance: ESOMEPRAZOLE
     Indication: Migraine
     Dosage: UNK
     Route: 065
  36. CIPROFLOXACIN [Suspect]
     Active Substance: CIPROFLOXACIN
     Indication: Migraine
     Dosage: UNK
     Route: 065
  37. CIPROFLOXACIN [Suspect]
     Active Substance: CIPROFLOXACIN
     Dosage: 1 DOSAGE FORM, QD
     Route: 065
  38. CIPROFLOXACIN [Suspect]
     Active Substance: CIPROFLOXACIN
     Dosage: UNK
     Route: 065
  39. SCOPOLAMINE [Suspect]
     Active Substance: SCOPOLAMINE
     Indication: Migraine
     Dosage: UNK
     Route: 065
  40. INDOMETHACIN [Suspect]
     Active Substance: INDOMETHACIN
     Indication: Migraine
     Dosage: UNK
     Route: 054
  41. INDOMETHACIN [Suspect]
     Active Substance: INDOMETHACIN
     Dosage: UNK
     Route: 054
  42. INDOMETHACIN [Suspect]
     Active Substance: INDOMETHACIN
     Dosage: UNK
     Route: 054
  43. INDOMETHACIN [Suspect]
     Active Substance: INDOMETHACIN
     Dosage: UNK
     Route: 054
  44. INDOMETHACIN [Suspect]
     Active Substance: INDOMETHACIN
     Dosage: UNK
     Route: 054
  45. INDOMETHACIN [Suspect]
     Active Substance: INDOMETHACIN
     Dosage: UNK
     Route: 065
  46. INDOMETHACIN [Suspect]
     Active Substance: INDOMETHACIN
     Dosage: UNK
     Route: 054
  47. INDOMETHACIN [Suspect]
     Active Substance: INDOMETHACIN
     Dosage: UNK
     Route: 054
  48. INDOMETHACIN [Suspect]
     Active Substance: INDOMETHACIN
     Dosage: UNK
     Route: 054
  49. INDOMETHACIN [Suspect]
     Active Substance: INDOMETHACIN
     Dosage: UNK
     Route: 054
  50. INDOMETHACIN [Suspect]
     Active Substance: INDOMETHACIN
     Dosage: UNK
     Route: 054
  51. INDOMETHACIN [Suspect]
     Active Substance: INDOMETHACIN
     Dosage: UNK
     Route: 054
  52. INDOMETHACIN [Suspect]
     Active Substance: INDOMETHACIN
     Dosage: UNK
     Route: 054
  53. INDOMETHACIN [Suspect]
     Active Substance: INDOMETHACIN
     Dosage: UNK
     Route: 054
  54. INDOMETHACIN [Suspect]
     Active Substance: INDOMETHACIN
     Dosage: UNK
     Route: 054
  55. INDOMETHACIN [Suspect]
     Active Substance: INDOMETHACIN
     Dosage: UNK
     Route: 054
  56. INDOMETHACIN [Suspect]
     Active Substance: INDOMETHACIN
     Dosage: UNK
     Route: 054
  57. INDOMETHACIN [Suspect]
     Active Substance: INDOMETHACIN
     Dosage: UNK
     Route: 054
  58. INDOMETHACIN [Suspect]
     Active Substance: INDOMETHACIN
     Dosage: UNK
     Route: 054
  59. INDOMETHACIN [Suspect]
     Active Substance: INDOMETHACIN
     Dosage: UNK
     Route: 054
  60. INDOMETHACIN [Suspect]
     Active Substance: INDOMETHACIN
     Dosage: UNK
     Route: 054
  61. INDOMETHACIN [Suspect]
     Active Substance: INDOMETHACIN
     Dosage: UNK
     Route: 054
  62. INDOMETHACIN [Suspect]
     Active Substance: INDOMETHACIN
     Dosage: UNK
     Route: 054
  63. INDOMETHACIN [Suspect]
     Active Substance: INDOMETHACIN
     Dosage: UNK
     Route: 054
  64. LISINOPRIL [Suspect]
     Active Substance: LISINOPRIL
     Indication: Migraine
     Dosage: 1 DOSAGE FORM, QD
     Route: 065
  65. LISINOPRIL [Suspect]
     Active Substance: LISINOPRIL
     Indication: Migraine
     Dosage: 1 DOSAGE FORM, QD
     Route: 048
  66. METOCLOPRAMIDE [Suspect]
     Active Substance: METOCLOPRAMIDE
     Indication: Migraine
     Dosage: UNK
     Route: 065
  67. MOMETASONE FUROATE [Suspect]
     Active Substance: MOMETASONE FUROATE
     Indication: Migraine
     Dosage: UNK
     Route: 065
  68. MOMETASONE FUROATE [Suspect]
     Active Substance: MOMETASONE FUROATE
     Dosage: UNK
     Route: 065
  69. MOMETASONE FUROATE [Suspect]
     Active Substance: MOMETASONE FUROATE
     Dosage: UNK
     Route: 065
  70. AZITHROMYCIN ANHYDROUS [Suspect]
     Active Substance: AZITHROMYCIN ANHYDROUS
     Indication: Migraine
     Dosage: UNK
     Route: 065
  71. AZITHROMYCIN ANHYDROUS [Suspect]
     Active Substance: AZITHROMYCIN ANHYDROUS
     Dosage: UNK
     Route: 065
  72. PREDNISONE [Suspect]
     Active Substance: PREDNISONE
     Indication: Product used for unknown indication
     Dosage: 2 DOSAGE FORM, QD
     Route: 065
  73. PREDNISONE [Suspect]
     Active Substance: PREDNISONE
     Dosage: UNK
     Route: 065
  74. PROPRANOLOL [Suspect]
     Active Substance: PROPRANOLOL HYDROCHLORIDE
     Indication: Migraine
     Dosage: UNK
     Route: 065
  75. PROPRANOLOL [Suspect]
     Active Substance: PROPRANOLOL HYDROCHLORIDE
     Dosage: UNK
     Route: 065
  76. RABEPRAZOLE [Suspect]
     Active Substance: RABEPRAZOLE
     Indication: Migraine
     Dosage: UNK
     Route: 065
  77. RABEPRAZOLE [Suspect]
     Active Substance: RABEPRAZOLE
     Dosage: UNK
     Route: 065
  78. RABEPRAZOLE [Suspect]
     Active Substance: RABEPRAZOLE
     Dosage: UNK
     Route: 065
  79. RABEPRAZOLE [Suspect]
     Active Substance: RABEPRAZOLE
     Dosage: UNK
     Route: 065
  80. RABEPRAZOLE [Suspect]
     Active Substance: RABEPRAZOLE
     Dosage: UNK
     Route: 065
  81. RABEPRAZOLE [Suspect]
     Active Substance: RABEPRAZOLE
     Dosage: UNK
     Route: 065
  82. RABEPRAZOLE [Suspect]
     Active Substance: RABEPRAZOLE
     Dosage: UNK
     Route: 065
  83. RABEPRAZOLE [Suspect]
     Active Substance: RABEPRAZOLE
     Dosage: UNK
     Route: 065
  84. RABEPRAZOLE [Suspect]
     Active Substance: RABEPRAZOLE
     Dosage: UNK
     Route: 065
  85. RABEPRAZOLE [Suspect]
     Active Substance: RABEPRAZOLE
     Dosage: UNK
     Route: 065
  86. RABEPRAZOLE [Suspect]
     Active Substance: RABEPRAZOLE
     Dosage: UNK
     Route: 065
  87. RABEPRAZOLE [Suspect]
     Active Substance: RABEPRAZOLE
     Dosage: UNK
     Route: 065
  88. RABEPRAZOLE [Suspect]
     Active Substance: RABEPRAZOLE
     Dosage: UNK
     Route: 065
  89. RABEPRAZOLE [Suspect]
     Active Substance: RABEPRAZOLE
     Dosage: UNK
     Route: 065
  90. RABEPRAZOLE [Suspect]
     Active Substance: RABEPRAZOLE
     Dosage: UNK
     Route: 065
  91. RABEPRAZOLE [Suspect]
     Active Substance: RABEPRAZOLE
     Dosage: UNK
     Route: 065
  92. RIZATRIPTAN [Suspect]
     Active Substance: RIZATRIPTAN
     Indication: Migraine
     Dosage: UNK
     Route: 065
  93. RIZATRIPTAN [Suspect]
     Active Substance: RIZATRIPTAN
     Dosage: UNK
     Route: 065
  94. RIZATRIPTAN [Suspect]
     Active Substance: RIZATRIPTAN
     Dosage: UNK
     Route: 065
  95. ALBUTEROL [Suspect]
     Active Substance: ALBUTEROL
     Indication: Product used for unknown indication
     Dosage: UNK
     Route: 065
  96. ALBUTEROL [Suspect]
     Active Substance: ALBUTEROL
     Dosage: UNK
     Route: 065
  97. SUMATRIPTAN [Suspect]
     Active Substance: SUMATRIPTAN
     Indication: Migraine
     Dosage: UNK
     Route: 065
  98. SUMATRIPTAN [Suspect]
     Active Substance: SUMATRIPTAN
     Dosage: UNK
     Route: 065
  99. TOPIRAMATE [Suspect]
     Active Substance: TOPIRAMATE
     Indication: Migraine
     Dosage: UNK
     Route: 065
  100. TRIMETHOPRIM [Suspect]
     Active Substance: TRIMETHOPRIM
     Indication: Product used for unknown indication
     Dosage: UNK
     Route: 065
  101. TRIMETHOPRIM [Suspect]
     Active Substance: TRIMETHOPRIM
     Dosage: UNK
     Route: 065
  102. ZOLMITRIPTAN [Suspect]
     Active Substance: ZOLMITRIPTAN
     Indication: Product used for unknown indication
     Dosage: UNK
     Route: 065
  103. ZOPICLONE [Suspect]
     Active Substance: ZOPICLONE
     Indication: Migraine
     Dosage: 1 DOSAGE FORM, QD
     Route: 065
  104. ZOPICLONE [Suspect]
     Active Substance: ZOPICLONE
     Dosage: 1 DOSAGE FORM, QD
     Route: 065
  105. ZOPICLONE [Suspect]
     Active Substance: ZOPICLONE
     Dosage: 1 DOSAGE FORM, QD
     Route: 065
  106. ZOPICLONE [Suspect]
     Active Substance: ZOPICLONE
     Dosage: 1 DOSAGE FORM, QD
     Route: 065
  107. ZOPICLONE [Suspect]
     Active Substance: ZOPICLONE
     Dosage: 1 DOSAGE FORM, QD
     Route: 065
  108. ZOPICLONE [Suspect]
     Active Substance: ZOPICLONE
     Dosage: 1 DOSAGE FORM, QD
     Route: 065
  109. ZOPICLONE [Suspect]
     Active Substance: ZOPICLONE
     Dosage: 1 DOSAGE FORM, QD
     Route: 065
  110. ZOPICLONE [Suspect]
     Active Substance: ZOPICLONE
     Dosage: 1 DOSAGE FORM, QD
     Route: 065
  111. ZOPICLONE [Suspect]
     Active Substance: ZOPICLONE
     Dosage: 1 DOSAGE FORM, QD
     Route: 065
  112. ZOPICLONE [Suspect]
     Active Substance: ZOPICLONE
     Dosage: 1 DOSAGE FORM, QD
     Route: 065
  113. ZOPICLONE [Suspect]
     Active Substance: ZOPICLONE
     Dosage: 1 DOSAGE FORM, QD
     Route: 065
  114. ZOPICLONE [Suspect]
     Active Substance: ZOPICLONE
     Dosage: 1 DOSAGE FORM, QD
     Route: 065
  115. ZOPICLONE [Suspect]
     Active Substance: ZOPICLONE
     Dosage: 1 DOSAGE FORM, QD
     Route: 065
  116. ZOPICLONE [Suspect]
     Active Substance: ZOPICLONE
     Dosage: 1 DOSAGE FORM, QD
     Route: 065
  117. ZOPICLONE [Suspect]
     Active Substance: ZOPICLONE
     Dosage: 1 DOSAGE FORM, QD
     Route: 065
  118. ZOPICLONE [Suspect]
     Active Substance: ZOPICLONE
     Dosage: 1 DOSAGE FORM, QD
     Route: 065
  119. ZOPICLONE [Suspect]
     Active Substance: ZOPICLONE
     Dosage: UNK
     Route: 065
  120. ZOPICLONE [Suspect]
     Active Substance: ZOPICLONE
     Dosage: 1 DOSAGE FORM, QD
     Route: 065
  121. SULFADIAZINE\TETROXOPRIM [Concomitant]
     Active Substance: SULFADIAZINE\TETROXOPRIM
     Dosage: UNK
     Route: 065
  122. NAPROXEN [Concomitant]
     Active Substance: NAPROXEN
     Dosage: UNK
     Route: 065
  123. OSELTAMIVIR [Concomitant]
     Active Substance: OSELTAMIVIR
     Dosage: UNK
     Route: 065
  124. PANTOPRAZOLE [Concomitant]
     Active Substance: PANTOPRAZOLE
     Dosage: UNK
     Route: 065
  125. METOCLOPRAMIDE [Concomitant]
     Active Substance: METOCLOPRAMIDE
     Dosage: UNK
     Route: 065
  126. METRONIDAZOLE [Concomitant]
     Active Substance: METRONIDAZOLE
     Dosage: UNK
     Route: 065
  127. MORPHINE SULFATE [Concomitant]
     Active Substance: MORPHINE SULFATE
     Dosage: UNK
     Route: 065
  128. DANAZOL [Concomitant]
     Active Substance: DANAZOL
     Dosage: UNK
     Route: 065
  129. CYMBALTA [Concomitant]
     Active Substance: DULOXETINE HYDROCHLORIDE
     Dosage: UNK
     Route: 065
  130. FERROUS FUMARATE [Concomitant]
     Active Substance: FERROUS FUMARATE
     Dosage: UNK
     Route: 065
  131. MACROBID [Concomitant]
     Active Substance: NITROFURANTOIN\NITROFURANTOIN MONOHYDRATE
     Dosage: UNK
     Route: 065
  132. CEPHALEXIN [Concomitant]
     Active Substance: CEPHALEXIN
     Dosage: UNK
     Route: 065
  133. POLYETHYLENE GLYCOLS [Concomitant]
     Active Substance: POLYETHYLENE GLYCOLS
     Dosage: UNK
     Route: 065
  134. FROVATRIPTAN [Concomitant]
     Active Substance: FROVATRIPTAN
     Dosage: UNK
     Route: 065
  135. FLUTICASONE [Concomitant]
     Active Substance: FLUTICASONE
     Dosage: UNK
     Route: 065
  136. CEFUROXIME [Concomitant]
     Active Substance: CEFUROXIME
     Dosage: UNK
     Route: 065
  137. FLUOXETINE [Concomitant]
     Active Substance: FLUOXETINE HYDROCHLORIDE
     Dosage: UNK
     Route: 065
  138. AZITHROMYCIN [Concomitant]
     Active Substance: AZITHROMYCIN
     Dosage: UNK
     Route: 065

REACTIONS (9)
  - Dysphonia [Unknown]
  - Swelling face [Unknown]
  - Swollen tongue [Unknown]
  - Headache [Unknown]
  - Angioedema [Unknown]
  - Drug ineffective for unapproved indication [Unknown]
  - Drug intolerance [Unknown]
  - Hypersensitivity [Unknown]
  - Off label use [Unknown]
